FAERS Safety Report 4675703-4 (Version None)
Quarter: 2005Q2

REPORT INFORMATION
  Report Type: 
  Country: None (occurrence: None)
  Receive Date: 20050527
  Receipt Date: 20050207
  Transmission Date: 20051028
  Serious: Yes (Death, Other)
  Sender: FDA-Public Use
  Company Number: US-BRISTOL-MYERS SQUIBB COMPANY-12851374

PATIENT

DRUGS (2)
  1. ERBITUX [Suspect]
     Indication: COLORECTAL CANCER
  2. IRINOTECAN [Concomitant]
     Indication: COLORECTAL CANCER

REACTIONS (2)
  - MALIGNANT NEOPLASM PROGRESSION [None]
  - METASTASES TO LUNG [None]
